FAERS Safety Report 8297999-2 (Version None)
Quarter: 2012Q2

REPORT INFORMATION
  Report Type: 
  Country: None (occurrence: None)
  Receive Date: 20120419
  Receipt Date: 20120413
  Transmission Date: 20120825
  Serious: Yes (Other)
  Sender: FDA-Public Use
  Company Number: US-PFIZER INC-2012052967

PATIENT
  Sex: Female
  Weight: 56.689 kg

DRUGS (4)
  1. PROCARDIA XL [Suspect]
     Dosage: 60 MG, 1X/DAY
     Route: 048
     Dates: start: 19980101, end: 19980101
  2. NIFEDIPINE [Suspect]
     Indication: CARDIOVASCULAR DISORDER
     Dosage: UNK
  3. PROCARDIA XL [Suspect]
     Dosage: 30 MG, 1X/DAY
     Route: 048
     Dates: start: 19980101
  4. PROCARDIA XL [Suspect]
     Indication: CARDIOVASCULAR DISORDER
     Dosage: 90 MG, 1X/DAY
     Route: 048
     Dates: start: 19971201, end: 19980101

REACTIONS (5)
  - DRUG INEFFECTIVE [None]
  - FATIGUE [None]
  - PAIN IN EXTREMITY [None]
  - GASTROOESOPHAGEAL REFLUX DISEASE [None]
  - SCLERODERMA [None]
